FAERS Safety Report 8597468-6 (Version None)
Quarter: 2012Q3

REPORT INFORMATION
  Report Type: 
  Country: None (occurrence: None)
  Receive Date: 20120816
  Receipt Date: 20120807
  Transmission Date: 20120928
  Serious: Yes (Other)
  Sender: FDA-Public Use
  Company Number: DE-JNJFOC-20111207329

PATIENT
  Sex: Female
  Weight: 98 kg

DRUGS (3)
  1. TRUVADA [Suspect]
     Indication: HIV INFECTION
     Route: 065
     Dates: start: 20111021
  2. PREZISTA [Suspect]
     Indication: HIV INFECTION
     Route: 048
     Dates: start: 20111021
  3. NORVIR [Suspect]
     Indication: HIV INFECTION
     Route: 065
     Dates: start: 20111021

REACTIONS (4)
  - MATERNAL EXPOSURE DURING PREGNANCY [None]
  - BLOOD GLUCOSE FLUCTUATION [None]
  - TREATMENT NONCOMPLIANCE [None]
  - FOETAL DEATH [None]
